FAERS Safety Report 7584624-9 (Version None)
Quarter: 2011Q2

REPORT INFORMATION
  Report Type: 
  Country: None (occurrence: None)
  Receive Date: 20110630
  Receipt Date: 20110623
  Transmission Date: 20111010
  Serious: Yes (Hospitalization, Other)
  Sender: FDA-Public Use
  Company Number: CA-TEVA-287978USA

PATIENT
  Sex: Male
  Weight: 100 kg

DRUGS (4)
  1. ENOXAPARIN SODIUM [Concomitant]
     Route: 042
  2. WARFARIN SODIUM [Suspect]
     Indication: EMBOLISM VENOUS
     Route: 048
     Dates: start: 20090201
  3. INVESTIGATIONAL DRUG [Suspect]
     Indication: EMBOLISM VENOUS
     Dates: start: 20090212
  4. DABIGATRAN ETEXILATE [Suspect]
     Indication: EMBOLISM VENOUS
     Dosage: 300 MILLIGRAM;
     Dates: start: 20090222

REACTIONS (1)
  - INCISION SITE HAEMATOMA [None]
